FAERS Safety Report 23215867 (Version 1)
Quarter: 2023Q4

REPORT INFORMATION
  Report Type: Spontaneous
  Country: US (occurrence: US)
  Receive Date: 20231122
  Receipt Date: 20231122
  Transmission Date: 20240110
  Serious: Yes (Hospitalization)
  Sender: FDA-Public Use
  Company Number: US-SPECGX-T202302235

PATIENT
  Age: 56 Year
  Sex: Female

DRUGS (2)
  1. METHADONE [Suspect]
     Active Substance: METHADONE HYDROCHLORIDE
     Indication: Pain
     Dosage: 10 MILLIGRAM, BID
     Route: 065
  2. MS CONTIN [Suspect]
     Active Substance: MORPHINE SULFATE
     Indication: Pain
     Dosage: 60 MILLIGRAM, BID
     Route: 065

REACTIONS (5)
  - Hypothyroidism [Unknown]
  - Decompensated hypothyroidism [Unknown]
  - Hypotension [Unknown]
  - Hypopituitarism [Unknown]
  - Depressed level of consciousness [Unknown]
